FAERS Safety Report 8434765-9 (Version None)
Quarter: 2012Q2

REPORT INFORMATION
  Report Type: 
  Country: None (occurrence: None)
  Receive Date: 20120614
  Receipt Date: 20120604
  Transmission Date: 20120825
  Serious: Yes (Other)
  Sender: FDA-Public Use
  Company Number: CA-JNJFOC-20120602487

PATIENT
  Sex: Female
  Weight: 58 kg

DRUGS (5)
  1. REMICADE [Suspect]
     Indication: RHEUMATOID ARTHRITIS
     Dosage: MORE THAN 10 YEARS
     Route: 042
  2. ACETAMINOPHEN [Concomitant]
     Route: 048
  3. DESLORATADINE [Concomitant]
     Route: 048
  4. NAPROXEN [Concomitant]
     Route: 065
  5. PREDNISONE TAB [Concomitant]
     Route: 065

REACTIONS (7)
  - HYPOAESTHESIA [None]
  - PRURITUS [None]
  - DISCOMFORT [None]
  - BODY TEMPERATURE INCREASED [None]
  - INFUSION RELATED REACTION [None]
  - URTICARIA [None]
  - ERYTHEMA [None]
